FAERS Safety Report 25576952 (Version 1)
Quarter: 2025Q3

REPORT INFORMATION
  Report Type: Spontaneous
  Country: EU (occurrence: EU)
  Receive Date: 20250718
  Receipt Date: 20250718
  Transmission Date: 20251020
  Serious: Yes (Hospitalization)
  Sender: PFIZER
  Company Number: None

PATIENT
  Age: 76 Year
  Sex: Male

DRUGS (4)
  1. METHOTREXATE SODIUM [Interacting]
     Active Substance: METHOTREXATE SODIUM
     Indication: Psoriatic arthropathy
     Dosage: FREQ:24 H; 10 MG
     Route: 048
     Dates: start: 20250602, end: 20250611
  2. ISONIAZID\PYRIDOXINE HYDROCHLORIDE [Interacting]
     Active Substance: ISONIAZID\PYRIDOXINE HYDROCHLORIDE
     Indication: Latent tuberculosis
     Dosage: FREQ:24 H;
     Route: 048
     Dates: start: 20250602, end: 20250611
  3. RIMACTANE [Interacting]
     Active Substance: RIFAMPIN
     Indication: Latent tuberculosis
     Dosage: FREQ:24 H;
     Route: 048
     Dates: start: 20250602, end: 20250611
  4. METHOTREXATE [Concomitant]
     Active Substance: METHOTREXATE
     Indication: Psoriatic arthropathy
     Dosage: 7.5 MG, WEEKLY
     Route: 048
     Dates: start: 20250408, end: 20250601

REACTIONS (6)
  - Drug interaction [Unknown]
  - Accidental overdose [Recovered/Resolved]
  - Inappropriate schedule of product administration [Recovered/Resolved]
  - Drug eruption [Recovering/Resolving]
  - Thrombocytopenia [Recovered/Resolved]
  - Leukopenia [Recovered/Resolved]

NARRATIVE: CASE EVENT DATE: 20250602
